FAERS Safety Report 11813609 (Version 3)
Quarter: 2016Q1

REPORT INFORMATION
  Report Type: Spontaneous
  Country: US (occurrence: US)
  Receive Date: 20151209
  Receipt Date: 20160201
  Transmission Date: 20160525
  Serious: Yes (Death, Hospitalization, Other)
  Sender: FDA-Public Use
  Company Number: US-009507513-1512USA003685

PATIENT
  Sex: Female
  Weight: 41.43 kg

DRUGS (15)
  1. MARINOL [Concomitant]
     Active Substance: DRONABINOL
     Indication: PRODUCT USED FOR UNKNOWN INDICATION
     Dosage: 2.5 MG, BID
     Route: 048
     Dates: start: 20150515
  2. ARANESP [Concomitant]
     Active Substance: DARBEPOETIN ALFA
     Indication: PRODUCT USED FOR UNKNOWN INDICATION
     Dosage: 200 MICROGRAM, QOW
     Route: 065
     Dates: start: 20150327, end: 20151029
  3. PHENERGAN [Concomitant]
     Active Substance: PROMETHAZINE HYDROCHLORIDE
     Indication: PRODUCT USED FOR UNKNOWN INDICATION
     Dosage: 10 MG, Q6H, PRN
     Dates: start: 20150321
  4. ALLOPURINOL. [Concomitant]
     Active Substance: ALLOPURINOL
     Indication: PRODUCT USED FOR UNKNOWN INDICATION
     Dosage: 100 MG, BID
     Route: 048
     Dates: start: 20150302
  5. LOMOTIL [Concomitant]
     Active Substance: ATROPINE SULFATE\DIPHENOXYLATE HYDROCHLORIDE
     Indication: DIARRHOEA
     Dosage: UNK, PRN
     Route: 048
  6. KEYTRUDA [Suspect]
     Active Substance: PEMBROLIZUMAB
     Indication: SMALL CELL LUNG CANCER
     Dosage: 100 MG, Q3W
     Route: 042
     Dates: start: 20150917
  7. LASIX [Concomitant]
     Active Substance: FUROSEMIDE
     Indication: SWELLING
     Dosage: 20 MG, QD PRN
     Route: 048
     Dates: start: 20150325
  8. NORVASC [Concomitant]
     Active Substance: AMLODIPINE BESYLATE
     Indication: PRODUCT USED FOR UNKNOWN INDICATION
     Dosage: 5 MG, UNK
  9. CARAFATE [Concomitant]
     Active Substance: SUCRALFATE
     Indication: PRODUCT USED FOR UNKNOWN INDICATION
     Dosage: 10 ML, QID 1 HOUR PRIOR TO MEALS
     Route: 048
     Dates: start: 20150827
  10. MS CONTIN [Concomitant]
     Active Substance: MORPHINE SULFATE
     Indication: PRODUCT USED FOR UNKNOWN INDICATION
     Dosage: 30 MG, BID
     Route: 048
     Dates: start: 20150702
  11. NITROGLYCERIN. [Concomitant]
     Active Substance: NITROGLYCERIN
     Indication: PRODUCT USED FOR UNKNOWN INDICATION
     Dosage: 0.4 MG, UNK
     Route: 060
     Dates: start: 20150302
  12. NORCO [Concomitant]
     Active Substance: ACETAMINOPHEN\HYDROCODONE BITARTRATE
     Indication: PAIN
     Dosage: 325 MG, PRN TID
     Route: 048
     Dates: start: 20150302
  13. EMLA [Concomitant]
     Active Substance: LIDOCAINE\PRILOCAINE
     Indication: PRODUCT USED FOR UNKNOWN INDICATION
     Dosage: 2.5% TOPICAL CREAM TO PORT SITE 30 MIN. PRIOR APPOINTMENT
     Route: 061
     Dates: start: 20150311
  14. ZOMETA [Concomitant]
     Active Substance: ZOLEDRONIC ACID
     Indication: PRODUCT USED FOR UNKNOWN INDICATION
     Dosage: UNK
     Dates: start: 20150325, end: 20151105
  15. DEXILANT [Concomitant]
     Active Substance: DEXLANSOPRAZOLE
     Indication: PRODUCT USED FOR UNKNOWN INDICATION
     Dosage: 30 MG, QD
     Route: 048
     Dates: start: 20150827

REACTIONS (15)
  - Candida infection [Unknown]
  - Hypotension [Unknown]
  - Nausea [Recovered/Resolved]
  - Dehydration [Unknown]
  - Mental status changes [Unknown]
  - Small cell lung cancer [Fatal]
  - Dyspnoea [Recovered/Resolved]
  - Phosphorus metabolism disorder [Unknown]
  - Chest pain [Recovered/Resolved]
  - Dysarthria [Unknown]
  - Hyperkalaemia [Unknown]
  - Bronchitis [Recovered/Resolved]
  - Cough [Unknown]
  - Chest discomfort [Recovered/Resolved]
  - Hyperglycaemia [Unknown]

NARRATIVE: CASE EVENT DATE: 20150917
